FAERS Safety Report 9147340 (Version 4)
Quarter: 2013Q3

REPORT INFORMATION
  Report Type: Report from Study
  Country: US (occurrence: US)
  Receive Date: 20130307
  Receipt Date: 20130919
  Transmission Date: 20140515
  Serious: Yes (Hospitalization, Other)
  Sender: FDA-Public Use
  Company Number: US-ELI_LILLY_AND_COMPANY-US201206009272

PATIENT
  Age: 68 Year
  Sex: Male
  Weight: 60.32 kg

DRUGS (7)
  1. TERIPARATIDE [Suspect]
     Indication: OSTEOPOROSIS
     Dosage: 20 UG, QD
     Dates: start: 2011
  2. TERIPARATIDE [Suspect]
     Dosage: 20 UG, QD
  3. INDERAL [Concomitant]
     Indication: ANXIETY
     Dosage: UNK
  4. LOSARTAN [Concomitant]
     Indication: HYPERTENSION
     Dosage: UNK
  5. SEROQUEL [Concomitant]
     Dosage: UNK
  6. LEXAPRO [Concomitant]
     Dosage: UNK
  7. LAMICTAL [Concomitant]
     Dosage: UNK

REACTIONS (21)
  - Fall [Unknown]
  - Loss of consciousness [Recovered/Resolved]
  - Loss of consciousness [Recovered/Resolved]
  - Fall [Unknown]
  - Encephalopathy [Recovered/Resolved]
  - Wrong drug administered [Unknown]
  - Foot fracture [Unknown]
  - Diplopia [Unknown]
  - Pain in extremity [Unknown]
  - Contusion [Unknown]
  - Fall [Unknown]
  - Dizziness [Unknown]
  - Drug withdrawal syndrome [Recovered/Resolved]
  - Fall [Unknown]
  - Syncope [Unknown]
  - Toxicity to various agents [Unknown]
  - Fall [Unknown]
  - Rib fracture [Unknown]
  - Fall [Unknown]
  - Laceration [Unknown]
  - Head injury [Unknown]
